FAERS Safety Report 5093890-3 (Version None)
Quarter: 2006Q3

REPORT INFORMATION
  Report Type: 
  Country: None (occurrence: None)
  Receive Date: 20060831
  Receipt Date: 20060124
  Transmission Date: 20061208
  Serious: Yes (Hospitalization)
  Sender: FDA-Public Use
  Company Number: US-BAYER-200610471BWH

PATIENT
  Age: 75 Year
  Sex: Female
  Weight: 82 kg

DRUGS (14)
  1. SORAFENIB [Suspect]
     Indication: METASTATIC MALIGNANT MELANOMA
     Dosage: TOTAL DAILY DOSE: 800 MG  UNIT DOSE: 200 MG
     Route: 048
     Dates: start: 20051215, end: 20060223
  2. DACARBAZINE [Suspect]
     Dosage: UNIT DOSE: 1000 MG/M2
     Route: 042
     Dates: start: 20051215, end: 20051215
  3. DACARBAZINE [Suspect]
     Dosage: UNIT DOSE: 1000 MG/M2
     Route: 042
     Dates: start: 20060112, end: 20060112
  4. AVANDIA [Concomitant]
     Indication: DIABETES MELLITUS
     Route: 048
     Dates: start: 20020901
  5. LEVOXYL [Concomitant]
     Indication: HYPOTHYROIDISM
     Route: 048
  6. LEVOXYL [Concomitant]
     Route: 048
     Dates: start: 19950101
  7. DIOVAN [Concomitant]
     Indication: HYPERTENSION
     Route: 048
  8. DIOVAN [Concomitant]
     Route: 048
     Dates: start: 19950101
  9. CRESTOR [Concomitant]
     Route: 048
  10. LORTAB [Concomitant]
     Indication: PAIN
     Dosage: AS USED: 5/500 MG
     Route: 048
     Dates: start: 20051212
  11. PHENERGAN HCL [Concomitant]
     Indication: NAUSEA
     Route: 048
     Dates: start: 20051212
  12. AMARYL [Concomitant]
     Indication: DIABETES MELLITUS
     Route: 048
     Dates: start: 20020901
  13. AMARYL [Concomitant]
     Dosage: TOTAL DAILY DOSE: 4 MG
     Route: 048
  14. PRILOSEC [Concomitant]
     Indication: DYSPEPSIA
     Route: 048
     Dates: start: 20051015

REACTIONS (8)
  - ARTERIOSCLEROSIS CORONARY ARTERY [None]
  - ATRIAL FIBRILLATION [None]
  - DILATATION ATRIAL [None]
  - INTRACARDIAC THROMBUS [None]
  - MYOCARDIAL INFARCTION [None]
  - SINUS TACHYCARDIA [None]
  - TRICUSPID VALVE INCOMPETENCE [None]
  - VENTRICULAR HYPERTROPHY [None]
